FAERS Safety Report 7499027-5 (Version None)
Quarter: 2011Q2

REPORT INFORMATION
  Report Type: 
  Country: None (occurrence: None)
  Receive Date: 20110516
  Receipt Date: 20110511
  Transmission Date: 20111010
  Serious: Yes (Other)
  Sender: FDA-Public Use
  Company Number: USA/USA/11/0018265

PATIENT
  Age: 15 Year
  Sex: Male
  Weight: 81.6475 kg

DRUGS (1)
  1. PANTOPRAZOLE SODIUM [Suspect]
     Indication: COELIAC DISEASE
     Dosage: 40 MG, 2 IN 1 Y, ORAL
     Route: 048
     Dates: start: 20110502, end: 20110519

REACTIONS (2)
  - OFF LABEL USE [None]
  - HAEMOPTYSIS [None]
